FAERS Safety Report 15278049 (Version 1)
Quarter: 2018Q4

REPORT INFORMATION
  Report Type: Spontaneous
  Country: US (occurrence: US)
  Receive Date: 20180814
  Receipt Date: 20180814
  Transmission Date: 20190204
  Serious: Yes (Hospitalization)
  Sender: FDA-Public Use
  Company Number: US-TEVA-2018-US-943461

PATIENT
  Age: 53 Year
  Sex: Female

DRUGS (5)
  1. PREDNISONE. [Suspect]
     Active Substance: PREDNISONE
     Indication: RHEUMATOID ARTHRITIS
     Dosage: ON STEROID FOR THE LAST 20 YEARS; CURRENTLY PREDNISONE 10 MG DAILY
     Route: 065
  2. ACTH [Suspect]
     Active Substance: CORTICOTROPIN
     Indication: RHEUMATOID ARTHRITIS
     Dosage: INCREASED TO 80MG 3 MONTHS PRIOR
     Route: 065
  3. ACTH [Suspect]
     Active Substance: CORTICOTROPIN
     Indication: RHEUMATOID ARTHRITIS
     Dosage: 40MG
     Route: 065
  4. ACTH [Suspect]
     Active Substance: CORTICOTROPIN
     Indication: SJOGREN^S SYNDROME
  5. PREDNISONE. [Suspect]
     Active Substance: PREDNISONE
     Indication: SJOGREN^S SYNDROME

REACTIONS (4)
  - Oedema peripheral [Recovering/Resolving]
  - Hyperglycaemia [Recovering/Resolving]
  - Cushingoid [Recovering/Resolving]
  - Diabetic ketoacidosis [Recovering/Resolving]
